FAERS Safety Report 5898763-1 (Version None)
Quarter: 2008Q3

REPORT INFORMATION
  Report Type: 
  Country: None (occurrence: None)
  Receive Date: 20080925
  Receipt Date: 20080812
  Transmission Date: 20090109
  Serious: No
  Sender: FDA-Public Use
  Company Number: A0730369A

PATIENT
  Age: 56 Year
  Sex: Male

DRUGS (11)
  1. WELLBUTRIN XL [Suspect]
     Indication: DRUG USE FOR UNKNOWN INDICATION
     Dosage: 150MG PER DAY
     Route: 048
     Dates: start: 20070501
  2. LEXAPRO [Concomitant]
  3. ATENOLOL [Concomitant]
  4. AMBIEN CR [Concomitant]
  5. AMLODIPINE [Concomitant]
  6. ALPRAZOLAM [Concomitant]
  7. FISH OIL [Concomitant]
  8. MULTI-VITAMIN [Concomitant]
  9. CALCIUM CITRATE [Concomitant]
  10. MAGNESIUM SULFATE [Concomitant]
  11. VITAMIN E [Concomitant]

REACTIONS (6)
  - APATHY [None]
  - DEPRESSED MOOD [None]
  - DRUG INEFFECTIVE [None]
  - PHARMACEUTICAL PRODUCT COMPLAINT [None]
  - SOMNAMBULISM [None]
  - SOMNOLENCE [None]
